FAERS Safety Report 20565201 (Version 1)
Quarter: 2022Q1

REPORT INFORMATION
  Report Type: Spontaneous
  Country: US (occurrence: US)
  Receive Date: 20220308
  Receipt Date: 20220308
  Transmission Date: 20220423
  Serious: No
  Sender: FDA-Public Use
  Company Number: US-SA-SAC20220301001375

PATIENT
  Age: 35 Year
  Sex: Female

DRUGS (2)
  1. DUPIXENT [Suspect]
     Active Substance: DUPILUMAB
     Indication: Dermatitis atopic
     Dosage: 300 MG, QOW
     Route: 058
     Dates: start: 20211210
  2. DESONIDE [Concomitant]
     Active Substance: DESONIDE
     Dosage: UNK

REACTIONS (4)
  - Rash [Not Recovered/Not Resolved]
  - Inflammation [Recovered/Resolved]
  - Acne [Recovered/Resolved]
  - Erythema [Not Recovered/Not Resolved]

NARRATIVE: CASE EVENT DATE: 20220215
